FAERS Safety Report 23862724 (Version 5)
Quarter: 2024Q2

REPORT INFORMATION
  Report Type: Spontaneous
  Country: US (occurrence: US)
  Receive Date: 20240516
  Receipt Date: 20240614
  Transmission Date: 20240715
  Serious: No
  Sender: FDA-Public Use
  Company Number: US-PFIZER INC-202400105851

PATIENT
  Age: 12 Year
  Sex: Male
  Weight: 41.7 kg

DRUGS (1)
  1. GENOTROPIN [Suspect]
     Active Substance: SOMATROPIN
     Indication: Growth hormone deficiency
     Dosage: 1.8 MG, 1X/DAY
     Route: 058
     Dates: start: 20240411

REACTIONS (3)
  - Device defective [Unknown]
  - Device leakage [Unknown]
  - Drug dose omission by device [Unknown]
